FAERS Safety Report 12959093 (Version 1)
Quarter: 2016Q4

REPORT INFORMATION
  Report Type: Spontaneous
  Country: US (occurrence: US)
  Receive Date: 20161121
  Receipt Date: 20161121
  Transmission Date: 20170207
  Serious: Yes (Other)
  Sender: FDA-Public Use
  Company Number: US-JNJFOC-20161022036

PATIENT
  Sex: Male

DRUGS (2)
  1. ACYCLOVIR. [Concomitant]
     Active Substance: ACYCLOVIR
     Indication: PROPHYLAXIS
     Route: 048
  2. IMBRUVICA [Suspect]
     Active Substance: IBRUTINIB
     Indication: MANTLE CELL LYMPHOMA
     Dosage: 560 MG, QD, BEDTIME
     Route: 048
     Dates: start: 201606

REACTIONS (3)
  - Neoplasm progression [Not Recovered/Not Resolved]
  - Sinus disorder [Unknown]
  - Dry mouth [Unknown]

NARRATIVE: CASE EVENT DATE: 201608
